FAERS Safety Report 23075958 (Version 1)
Quarter: 2023Q4

REPORT INFORMATION
  Report Type: Spontaneous
  Country: US (occurrence: US)
  Receive Date: 20231017
  Receipt Date: 20231017
  Transmission Date: 20240110
  Serious: Yes (Life-Threatening, Hospitalization, Other)
  Sender: FDA-Public Use
  Company Number: US-SUN PHARMACEUTICAL INDUSTRIES LTD-2023R1-413267

PATIENT
  Sex: Female

DRUGS (3)
  1. NIFEDIPINE [Suspect]
     Active Substance: NIFEDIPINE
     Indication: Pre-eclampsia
     Dosage: UNK
     Route: 064
  2. DEXAMETHASONE [Suspect]
     Active Substance: DEXAMETHASONE
     Indication: Maternal therapy to enhance foetal lung maturity
     Dosage: UNK
     Route: 064
  3. MAGNESIUM SULFATE [Suspect]
     Active Substance: MAGNESIUM SULFATE
     Indication: Pre-eclampsia
     Dosage: UNK
     Route: 064

REACTIONS (7)
  - Foetal exposure during pregnancy [Unknown]
  - Premature baby [Unknown]
  - Low birth weight baby [Unknown]
  - Intestinal perforation [Unknown]
  - Respiratory distress [Unknown]
  - Oxygen saturation decreased [Unknown]
  - Crying [Unknown]
